FAERS Safety Report 6613435-3 (Version None)
Quarter: 2010Q1

REPORT INFORMATION
  Report Type: 
  Country: None (occurrence: None)
  Receive Date: 20100304
  Receipt Date: 20100222
  Transmission Date: 20100710
  Serious: Yes (Hospitalization, Other)
  Sender: FDA-Public Use
  Company Number: US-ABBOTT-10P-163-0627995-00

PATIENT
  Sex: Female
  Weight: 72.64 kg

DRUGS (2)
  1. LUPRON DEPOT [Suspect]
     Indication: ENDOMETRIOSIS
     Dosage: DOSE UNKNOWN
     Route: 030
     Dates: start: 20001001, end: 20001101
  2. VITAMIN TAB [Concomitant]
     Indication: PREGNANCY

REACTIONS (7)
  - ABDOMINAL PAIN [None]
  - COAGULATION FACTOR V LEVEL ABNORMAL [None]
  - GALLBLADDER NECROSIS [None]
  - INTESTINAL ISCHAEMIA [None]
  - METHYLENETETRAHYDROFOLATE REDUCTASE POLYMORPHISM [None]
  - SWELLING [None]
  - THROMBOSIS [None]
